FAERS Safety Report 21423753 (Version 1)
Quarter: 2022Q4

REPORT INFORMATION
  Report Type: Spontaneous
  Country: DE (occurrence: DE)
  Receive Date: 20221007
  Receipt Date: 20221007
  Transmission Date: 20230112
  Serious: Yes (Hospitalization)
  Sender: FDA-Public Use
  Company Number: DE-ADRED-08240-01

PATIENT
  Age: 86 Year
  Sex: Male

DRUGS (7)
  1. PREDNISONE [Suspect]
     Active Substance: PREDNISONE
     Indication: Product used for unknown indication
     Dosage: 10 MILLIGRAM DAILY; 5 MG, 1-0-1-0
  2. AMIOGAMMA [Concomitant]
     Indication: Product used for unknown indication
     Dosage: 200 MILLIGRAM DAILY; 200 MG, 1-0-0-0 , AMIOGAMMA 200
  3. SIMVASTATIN [Concomitant]
     Active Substance: SIMVASTATIN
     Indication: Product used for unknown indication
     Dosage: 20 MILLIGRAM DAILY; 20 MG, 0-0-1-0
  4. ELIQUIS [Concomitant]
     Active Substance: APIXABAN
     Indication: Product used for unknown indication
     Dosage: 5 MILLIGRAM DAILY; 2.5 MG, 1-0-1-0 , FORM STRENGTH : 2.5 MG
  5. TRENANTONE [Concomitant]
     Active Substance: LEUPROLIDE ACETATE
     Indication: Product used for unknown indication
     Dosage: EVERY THREE MONTHS, 3-MONTH DEPOT 11.25MG
  6. CANDESARTAN CILEXETIL [Concomitant]
     Active Substance: CANDESARTAN CILEXETIL
     Indication: Product used for unknown indication
     Dosage: .5 DOSAGE FORMS DAILY; 16 MG, 0-0.5-0-0 , FORM STRENGTH : 16 MG
  7. carmen [Concomitant]
     Indication: Product used for unknown indication
     Dosage: 20 MILLIGRAM DAILY; 10 MG, 1-0-1-0 , FORM STRENGTH : 10 MG

REACTIONS (1)
  - Spinal pain [Unknown]

NARRATIVE: CASE EVENT DATE: 20211017
